FAERS Safety Report 24837696 (Version 2)
Quarter: 2025Q1

REPORT INFORMATION
  Report Type: Report from Study
  Country: US (occurrence: US)
  Receive Date: 20250113
  Receipt Date: 20250215
  Transmission Date: 20250408
  Serious: Yes (Other)
  Sender: UCB
  Company Number: US-UCBSA-2024060628

PATIENT
  Age: 62 Year
  Sex: Female

DRUGS (1)
  1. BIMEKIZUMAB [Suspect]
     Active Substance: BIMEKIZUMAB
     Indication: Psoriasis
     Dosage: 320 MILLIGRAM, EV 4 WEEKS
     Route: 058
     Dates: start: 20241104

REACTIONS (9)
  - Psoriatic arthropathy [Not Recovered/Not Resolved]
  - Tongue geographic [Not Recovered/Not Resolved]
  - Oral candidiasis [Recovering/Resolving]
  - Injection site pain [Unknown]
  - Headache [Not Recovered/Not Resolved]
  - Middle ear effusion [Not Recovered/Not Resolved]
  - Periorbital swelling [Recovered/Resolved]
  - Limb injury [Unknown]
  - Therapeutic product effect incomplete [Unknown]

NARRATIVE: CASE EVENT DATE: 20241101
